FAERS Safety Report 5454061-1 (Version None)
Quarter: 2007Q3

REPORT INFORMATION
  Report Type: 
  Country: None (occurrence: None)
  Receive Date: 20070917
  Receipt Date: 20070905
  Transmission Date: 20080115
  Serious: Yes (Life-Threatening, Hospitalization)
  Sender: FDA-Public Use
  Company Number: GB-ROCHE-515887

PATIENT
  Age: 16 Year
  Sex: Male
  Weight: 73 kg

DRUGS (3)
  1. ISOTRETINOIN [Suspect]
     Indication: ACNE
     Route: 048
     Dates: start: 20070613, end: 20070724
  2. ERYTHROMYCIN [Suspect]
     Indication: ACNE
     Route: 048
     Dates: start: 20070613, end: 20070724
  3. PARACETAMOL [Concomitant]
     Indication: HEADACHE
     Route: 048
     Dates: start: 20070720

REACTIONS (4)
  - ENCEPHALOPATHY [None]
  - HALLUCINATION [None]
  - HEADACHE [None]
  - NAUSEA [None]
